FAERS Safety Report 20308569 (Version 2)
Quarter: 2022Q1

REPORT INFORMATION
  Report Type: Spontaneous
  Country: US (occurrence: US)
  Receive Date: 20220107
  Receipt Date: 20220211
  Transmission Date: 20220423
  Serious: No
  Sender: FDA-Public Use
  Company Number: US-PFIZER INC-202101761010

PATIENT
  Age: 67 Year
  Sex: Female
  Weight: 73.48 kg

DRUGS (3)
  1. PREMARIN [Suspect]
     Active Substance: ESTROGENS, CONJUGATED
     Indication: Oestrogen deficiency
     Dosage: 1 G, 1X/DAY
  2. PREMARIN [Suspect]
     Active Substance: ESTROGENS, CONJUGATED
     Indication: Pain
  3. NITROFURANTOIN [Concomitant]
     Active Substance: NITROFURANTOIN
     Indication: Cystitis
     Dosage: UNK

REACTIONS (4)
  - Illness [Unknown]
  - Poor quality product administered [Unknown]
  - Product container issue [Unknown]
  - Off label use [Unknown]
